FAERS Safety Report 12438239 (Version 1)
Quarter: 2016Q2

REPORT INFORMATION
  Report Type: Other
  Country: IT (occurrence: IT)
  Receive Date: 20160606
  Receipt Date: 20160606
  Transmission Date: 20160815
  Serious: Yes (Other)
  Sender: FDA-Public Use
  Company Number: IT-MYLANLABS-2016M1022952

PATIENT

DRUGS (1)
  1. LEVOFLOXACIN. [Suspect]
     Active Substance: LEVOFLOXACIN
     Indication: BRONCHITIS
     Dosage: 500 MG, QD
     Route: 048
     Dates: start: 20160212, end: 20160214

REACTIONS (4)
  - Oedema peripheral [Unknown]
  - Musculoskeletal disorder [Unknown]
  - Pain in extremity [Unknown]
  - Erythema [Unknown]

NARRATIVE: CASE EVENT DATE: 20160214
